FAERS Safety Report 12177259 (Version 1)
Quarter: 2016Q1

REPORT INFORMATION
  Report Type: Other
  Country: GB (occurrence: GB)
  Receive Date: 20160315
  Receipt Date: 20160315
  Transmission Date: 20160526
  Serious: Yes (Other)
  Sender: FDA-Public Use
  Company Number: GB-LUPIN PHARMACEUTICALS INC.-E2B_00004625

PATIENT
  Age: 28 Year
  Sex: Female
  Weight: 93.43 kg

DRUGS (1)
  1. SERTRALINE [Suspect]
     Active Substance: SERTRALINE HYDROCHLORIDE
     Indication: ANXIETY
     Route: 048
     Dates: start: 20151123, end: 20151123

REACTIONS (6)
  - Dyspepsia [Recovered/Resolved]
  - Chest pain [Recovered/Resolved]
  - Flushing [Recovered/Resolved]
  - Restlessness [Recovered/Resolved]
  - Nausea [Recovered/Resolved]
  - Malaise [Recovered/Resolved]

NARRATIVE: CASE EVENT DATE: 20151123
